FAERS Safety Report 7829585-X (Version None)
Quarter: 2011Q4

REPORT INFORMATION
  Report Type: 
  Country: None (occurrence: None)
  Receive Date: 20111020
  Receipt Date: 20111011
  Transmission Date: 20120403
  Serious: Yes (Hospitalization, Other)
  Sender: FDA-Public Use
  Company Number: US-ASTRAZENECA-2011SE40554

PATIENT
  Age: 54 Year
  Sex: Female

DRUGS (2)
  1. NEXIUM [Suspect]
     Route: 048
  2. SEROQUEL [Suspect]
     Route: 048

REACTIONS (8)
  - LOWER LIMB FRACTURE [None]
  - HYPOTENSION [None]
  - UPPER LIMB FRACTURE [None]
  - MUSCLE RUPTURE [None]
  - FALL [None]
  - ROTATOR CUFF SYNDROME [None]
  - ARTHROPATHY [None]
  - CARDIAC DISORDER [None]
